FAERS Safety Report 7417480-X (Version None)
Quarter: 2011Q2

REPORT INFORMATION
  Report Type: 
  Country: None (occurrence: None)
  Receive Date: 20110415
  Receipt Date: 20110412
  Transmission Date: 20111010
  Serious: Yes (Other)
  Sender: FDA-Public Use
  Company Number: CN-PFIZER INC-2011080839

PATIENT

DRUGS (1)
  1. TAZOCIN [Suspect]
     Indication: PNEUMONIA
     Dosage: 4.5 G, 3X/DAY

REACTIONS (1)
  - PLATELET COUNT DECREASED [None]
